FAERS Safety Report 7729731-2 (Version None)
Quarter: 2011Q3

REPORT INFORMATION
  Report Type: 
  Country: None (occurrence: None)
  Receive Date: 20110906
  Receipt Date: 20110829
  Transmission Date: 20111222
  Serious: Yes (Hospitalization)
  Sender: FDA-Public Use
  Company Number: US-JNJFOC-20110813298

PATIENT
  Sex: Female
  Weight: 81.65 kg

DRUGS (5)
  1. REMICADE [Suspect]
     Indication: PSORIATIC ARTHROPATHY
     Route: 042
     Dates: start: 20010101
  2. PREDNISONE [Suspect]
     Indication: PSORIATIC ARTHROPATHY
     Route: 048
     Dates: start: 20101201
  3. REMICADE [Suspect]
     Route: 042
     Dates: start: 20100801
  4. FOLIC ACID [Concomitant]
     Indication: GASTRIC DISORDER
     Route: 048
  5. METHOTREXATE [Concomitant]
     Indication: PSORIATIC ARTHROPATHY
     Route: 048
     Dates: start: 20000101

REACTIONS (6)
  - DEPRESSION [None]
  - PSORIATIC ARTHROPATHY [None]
  - ANAEMIA [None]
  - FIBROMYALGIA [None]
  - WEIGHT INCREASED [None]
  - UTERINE LEIOMYOMA [None]
